FAERS Safety Report 25840702 (Version 1)
Quarter: 2025Q3

REPORT INFORMATION
  Report Type: Spontaneous
  Country: US (occurrence: US)
  Receive Date: 20250924
  Receipt Date: 20250924
  Transmission Date: 20251020
  Serious: Yes (Other)
  Sender: CSL BEHRING
  Company Number: US-BEH-2025219539

PATIENT
  Age: 27 Year
  Sex: Female

DRUGS (1)
  1. HUMATE-P [Suspect]
     Active Substance: HUMAN COAGULATION FACTOR VIII/VON WILLEBRAND FACTOR COMPLEX
     Indication: Von Willebrand^s disease
     Dosage: 3500 IU, TIW(3150-3850)
     Route: 042
     Dates: start: 201702

REACTIONS (4)
  - Haemarthrosis [Recovered/Resolved]
  - Head injury [Unknown]
  - Dizziness [Unknown]
  - Concussion [Unknown]

NARRATIVE: CASE EVENT DATE: 20250902
